FAERS Safety Report 19795320 (Version 1)
Quarter: 2021Q3

REPORT INFORMATION
  Report Type: Spontaneous
  Country: FR (occurrence: FR)
  Receive Date: 20210907
  Receipt Date: 20210907
  Transmission Date: 20211014
  Serious: Yes (Other)
  Sender: FDA-Public Use
  Company Number: FR-ROCHE-2903639

PATIENT
  Age: 43 Year
  Sex: Female

DRUGS (1)
  1. ALECTINIB. [Suspect]
     Active Substance: ALECTINIB
     Indication: NON-SMALL CELL LUNG CANCER
     Route: 065
     Dates: start: 20190901

REACTIONS (5)
  - Drug ineffective [Unknown]
  - Lymphangitis [Unknown]
  - Pulmonary mass [Unknown]
  - Pleural effusion [Unknown]
  - Chest pain [Unknown]

NARRATIVE: CASE EVENT DATE: 201910
